FAERS Safety Report 26051217 (Version 1)
Quarter: 2025Q4

REPORT INFORMATION
  Report Type: Spontaneous
  Country: TN (occurrence: TN)
  Receive Date: 20251117
  Receipt Date: 20251117
  Transmission Date: 20260118
  Serious: Yes (Death, Other)
  Sender: RK PHARMA
  Company Number: TN-RK PHARMA, INC-20251100166

PATIENT
  Age: 2 Month
  Sex: Female
  Weight: 4.2 kg

DRUGS (5)
  1. URSODIOL [Suspect]
     Active Substance: URSODIOL
     Indication: Neonatal cholestasis
     Dosage: UNK, UNKNOWN
     Route: 065
  2. SPIRONOLACTONE [Concomitant]
     Active Substance: SPIRONOLACTONE
     Indication: Neonatal cholestasis
  3. GANCICLOVIR [Concomitant]
     Active Substance: GANCICLOVIR
     Indication: Cytomegalovirus infection
     Dosage: FOR 3 WEEKS
     Route: 042
  4. VITAMIN K [Concomitant]
     Active Substance: PHYTONADIONE
     Indication: Hypocoagulable state
  5. DEXTROSE [Concomitant]
     Active Substance: DEXTROSE MONOHYDRATE
     Indication: Hypoglycaemia
     Route: 042

REACTIONS (4)
  - Hepatic failure [Fatal]
  - Disseminated intravascular coagulation [Fatal]
  - Drug ineffective for unapproved indication [Fatal]
  - Contraindicated product administered [Unknown]
